FAERS Safety Report 10183562 (Version 2)
Quarter: 2016Q1

REPORT INFORMATION
  Report Type: Spontaneous
  Country: SE (occurrence: SE)
  Receive Date: 20140520
  Receipt Date: 20160330
  Transmission Date: 20160525
  Serious: Yes (Other)
  Sender: FDA-Public Use
  Company Number: PHHY2014SE057283

PATIENT

DRUGS (3)
  1. SIMVASTATIN SANDOZ [Suspect]
     Active Substance: SIMVASTATIN
     Indication: BLOOD CHOLESTEROL INCREASED
     Dosage: 20 MG, UNK
     Route: 065
     Dates: start: 20120214, end: 20140103
  2. SALURES [Suspect]
     Active Substance: BENDROFLUMETHIAZIDE
     Indication: HYPERTENSION
     Dosage: 2.5 MG, UNK
     Route: 065
     Dates: start: 20090421, end: 20130228
  3. SALURES [Suspect]
     Active Substance: BENDROFLUMETHIAZIDE
     Dosage: 5 MG, QD
     Route: 065
     Dates: end: 201401

REACTIONS (2)
  - Alopecia [Not Recovered/Not Resolved]
  - Dandruff [Not Recovered/Not Resolved]

NARRATIVE: CASE EVENT DATE: 2013
